FAERS Safety Report 24074690 (Version 1)
Quarter: 2024Q3

REPORT INFORMATION
  Report Type: Spontaneous
  Country: US (occurrence: US)
  Receive Date: 20240710
  Receipt Date: 20240710
  Transmission Date: 20241016
  Serious: No
  Sender: PIERRE FABRE MEDICAMENT
  Company Number: US-PFM-2023-06982

PATIENT
  Sex: Female
  Weight: 6.118 kg

DRUGS (1)
  1. PROPRANOLOL HYDROCHLORIDE [Suspect]
     Active Substance: PROPRANOLOL HYDROCHLORIDE
     Indication: Haemangioma
     Dosage: 1.4 ML, BID (2/DAY)
     Route: 048
     Dates: start: 20231004

REACTIONS (5)
  - Condition aggravated [Unknown]
  - Haemangioma [Unknown]
  - Illness [Unknown]
  - Cyanosis [Unknown]
  - Drug ineffective [Unknown]
